FAERS Safety Report 9052593 (Version 1)
Quarter: 2013Q1

REPORT INFORMATION
  Report Type: Spontaneous
  Country: US (occurrence: US)
  Receive Date: 20130207
  Receipt Date: 20130207
  Transmission Date: 20140127
  Serious: Yes (Hospitalization)
  Sender: FDA-Public Use
  Company Number: US-B.I. PHARMACEUTICALS,INC./RIDGEFIELD-2011-BP-22422BP

PATIENT
  Age: 63 None
  Sex: Male

DRUGS (4)
  1. PRADAXA [Suspect]
     Indication: ATRIAL FIBRILLATION
     Dosage: 150 MG
     Dates: start: 201104
  2. PRADAXA [Suspect]
     Indication: ANTICOAGULANT THERAPY
  3. CELEBREX [Concomitant]
     Indication: ARTHRITIS
     Dates: start: 201109
  4. MOBIC [Concomitant]
     Indication: ARTHRITIS
     Dates: end: 201109

REACTIONS (2)
  - Ulcer haemorrhage [Not Recovered/Not Resolved]
  - Gastric ulcer [Unknown]
